FAERS Safety Report 5413647-0 (Version None)
Quarter: 2007Q3

REPORT INFORMATION
  Report Type: 
  Country: None (occurrence: None)
  Receive Date: 20070810
  Receipt Date: 20070731
  Transmission Date: 20080115
  Serious: Yes (Hospitalization)
  Sender: FDA-Public Use
  Company Number: 2007-162133-NL

PATIENT
  Age: 30 Year
  Sex: Female

DRUGS (2)
  1. ETONOGESTREL [Suspect]
     Indication: CONTRACEPTION
     Dosage: DF SUBCUTANEOUS
     Route: 058
     Dates: start: 20011127
  2. CARBAMAZEPINE [Concomitant]

REACTIONS (1)
  - CONVULSION [None]
